FAERS Safety Report 13388840 (Version 2)
Quarter: 2017Q1

REPORT INFORMATION
  Report Type: Spontaneous
  Country: JP (occurrence: JP)
  Receive Date: 20170330
  Receipt Date: 20170331
  Transmission Date: 20170429
  Serious: Yes (Death)
  Sender: FDA-Public Use
  Company Number: JP-EISAI MEDICAL RESEARCH-EC-2017-025448

PATIENT
  Age: 78 Year
  Sex: Female
  Weight: 45 kg

DRUGS (18)
  1. LENVIMA [Suspect]
     Active Substance: LENVATINIB
     Route: 048
     Dates: start: 20160420, end: 20160425
  2. PASTARON [Concomitant]
     Active Substance: UREA
     Indication: PROPHYLAXIS
     Dosage: UNKNOWN
  3. AMLODIN OD [Concomitant]
     Active Substance: AMLODIPINE BESYLATE
     Indication: PROPHYLAXIS
     Dosage: UNKNOWN
     Route: 048
  4. OLMETEC [Concomitant]
     Active Substance: OLMESARTAN MEDOXOMIL
     Indication: PROPHYLAXIS
     Route: 048
     Dates: end: 20150803
  5. LENVIMA [Suspect]
     Active Substance: LENVATINIB
     Route: 048
     Dates: start: 20150909, end: 20150916
  6. LENVIMA [Suspect]
     Active Substance: LENVATINIB
     Route: 048
     Dates: start: 20150930, end: 20151014
  7. LENVIMA [Suspect]
     Active Substance: LENVATINIB
     Route: 048
     Dates: start: 20151021, end: 20160418
  8. OXAROL [Concomitant]
     Active Substance: MAXACALCITOL
     Indication: PROPHYLAXIS
     Dosage: UNKNOWN
  9. LEVOTHYROXINE SODIUM HYDRATE [Concomitant]
     Active Substance: LEVOTHYROXINE SODIUM
     Indication: THYROID DISORDER
     Dosage: UNKNOWN
  10. LENVIMA [Suspect]
     Active Substance: LENVATINIB
     Route: 048
     Dates: start: 20160712, end: 20160725
  11. LENVIMA [Suspect]
     Active Substance: LENVATINIB
     Indication: PAPILLARY THYROID CANCER
     Route: 048
     Dates: start: 20150805, end: 20150807
  12. LENVIMA [Suspect]
     Active Substance: LENVATINIB
     Route: 048
     Dates: start: 20160508, end: 20160704
  13. CARDENALIN [Concomitant]
     Active Substance: DOXAZOSIN MESYLATE
     Indication: PROPHYLAXIS
     Dosage: UNKNOWN
     Route: 048
  14. ATOLANT [Concomitant]
     Indication: PROPHYLAXIS
     Dosage: UNKNOWN
  15. PROMAC [Concomitant]
     Active Substance: NITROFURANTOIN
     Indication: PROPHYLAXIS
     Dosage: UNKNOWN
     Route: 048
  16. LENVIMA [Suspect]
     Active Substance: LENVATINIB
     Route: 048
     Dates: start: 20150808, end: 20150908
  17. LENVIMA [Suspect]
     Active Substance: LENVATINIB
     Route: 048
     Dates: start: 20160805, end: 20161026
  18. UREPEARL [Concomitant]
     Active Substance: UREA
     Indication: PROPHYLAXIS
     Dosage: UNKNOWN

REACTIONS (2)
  - Malignant neoplasm progression [Fatal]
  - Blood urine present [Not Recovered/Not Resolved]

NARRATIVE: CASE EVENT DATE: 20160806
